FAERS Safety Report 11338994 (Version 1)
Quarter: 2015Q3

REPORT INFORMATION
  Report Type: Spontaneous
  Country: US (occurrence: US)
  Receive Date: 20150803
  Receipt Date: 20150803
  Transmission Date: 20151125
  Serious: No
  Sender: FDA-Public Use
  Company Number: US-ELI_LILLY_AND_COMPANY-US200902001106

PATIENT
  Age: 8 Year
  Sex: Male

DRUGS (4)
  1. STRATTERA [Suspect]
     Active Substance: ATOMOXETINE HYDROCHLORIDE
     Dosage: 25 MG, 2/D
     Route: 065
     Dates: start: 2009
  2. STRATTERA [Suspect]
     Active Substance: ATOMOXETINE HYDROCHLORIDE
     Indication: DISTURBANCE IN ATTENTION
     Dosage: 25 MG, EACH EVENING
     Route: 065
     Dates: start: 2008, end: 200901
  3. STRATTERA [Suspect]
     Active Substance: ATOMOXETINE HYDROCHLORIDE
     Dosage: 25 MG, EACH MORNING
     Route: 065
     Dates: start: 200901, end: 2009
  4. SEROQUEL [Concomitant]
     Active Substance: QUETIAPINE FUMARATE
     Dosage: UNK, EACH MORNING
     Route: 065
     Dates: end: 200901

REACTIONS (2)
  - Psychomotor hyperactivity [Recovered/Resolved]
  - Drug ineffective [Recovered/Resolved]

NARRATIVE: CASE EVENT DATE: 200901
